FAERS Safety Report 6925589-X (Version None)
Quarter: 2010Q3

REPORT INFORMATION
  Report Type: 
  Country: None (occurrence: None)
  Receive Date: 20100816
  Receipt Date: 20100805
  Transmission Date: 20110219
  Serious: Yes (Hospitalization)
  Sender: FDA-Public Use
  Company Number: JP-MERCK-1005USA03001

PATIENT
  Age: 50 Year
  Sex: Male

DRUGS (5)
  1. ZETIA [Suspect]
     Indication: DYSLIPIDAEMIA
     Route: 048
     Dates: start: 20100427, end: 20100503
  2. LANSOPRAZOLE [Concomitant]
     Route: 065
     Dates: start: 20100411
  3. FLOPROPIONE [Concomitant]
     Route: 065
     Dates: start: 20100411
  4. METOCLOPRAMIDE [Concomitant]
     Route: 065
     Dates: start: 20100411
  5. CAMOSTAT MESYLATE [Concomitant]
     Route: 065
     Dates: start: 20100411

REACTIONS (2)
  - CONVULSION [None]
  - RHABDOMYOLYSIS [None]
